FAERS Safety Report 8092852-1 (Version None)
Quarter: 2012Q1

REPORT INFORMATION
  Report Type: 
  Country: None (occurrence: None)
  Receive Date: 20120128
  Receipt Date: 20110725
  Transmission Date: 20120608
  Serious: No
  Sender: FDA-Public Use
  Company Number: US-ABBOTT-11P-163-0841711-00

PATIENT
  Age: 69 Year
  Sex: Female

DRUGS (4)
  1. UNKNOWN MEDICATIONS [Concomitant]
     Indication: PRODUCT USED FOR UNKNOWN INDICATION
  2. ADVAIR DISKUS 100/50 [Concomitant]
     Indication: PRODUCT USED FOR UNKNOWN INDICATION
  3. METHOTREXATE [Concomitant]
     Indication: PRODUCT USED FOR UNKNOWN INDICATION
     Dosage: WEEKLY, FOR 2 WEEKS
     Route: 048
     Dates: start: 20110519, end: 20110601
  4. HUMIRA [Suspect]
     Indication: RHEUMATOID ARTHRITIS
     Dates: start: 20110520, end: 20110708

REACTIONS (7)
  - DYSPNOEA [None]
  - BED REST [None]
  - OEDEMA PERIPHERAL [None]
  - UNEVALUABLE EVENT [None]
  - MUSCULAR WEAKNESS [None]
  - JOINT SWELLING [None]
  - FEELING ABNORMAL [None]
